FAERS Safety Report 5268627-5 (Version None)
Quarter: 2007Q1

REPORT INFORMATION
  Report Type: 
  Country: None (occurrence: None)
  Receive Date: 20070313
  Receipt Date: 20070301
  Transmission Date: 20070707
  Serious: Yes (Other)
  Sender: FDA-Public Use
  Company Number: POMP-10944

PATIENT
  Age: 40 Year
  Sex: Male

DRUGS (1)
  1. MYOZYME [Suspect]
     Indication: GLYCOGEN STORAGE DISEASE TYPE II
     Dosage: 1300 MG Q2WKS IV
     Route: 042
     Dates: start: 20061003, end: 20070124

REACTIONS (3)
  - HYPERCOAGULATION [None]
  - PAIN IN EXTREMITY [None]
  - VENOUS OCCLUSION [None]
